FAERS Safety Report 23514951 (Version 1)
Quarter: 2024Q1

REPORT INFORMATION
  Report Type: Report from Study
  Country: IL (occurrence: IL)
  Receive Date: 20240212
  Receipt Date: 20240212
  Transmission Date: 20240410
  Serious: Yes (Hospitalization, Other)
  Sender: FDA-Public Use
  Company Number: IL-BAXTER-2024BAX012595

PATIENT
  Age: 69 Year
  Sex: Male
  Weight: 65 kg

DRUGS (22)
  1. CYCLOPHOSPHAMIDE [Suspect]
     Active Substance: CYCLOPHOSPHAMIDE
     Indication: Diffuse large B-cell lymphoma
     Dosage: 1323 MG, EVERY 3 WEEKS, ONGOING
     Route: 042
     Dates: start: 20240110
  2. EPCORITAMAB [Suspect]
     Active Substance: EPCORITAMAB
     Indication: Diffuse large B-cell lymphoma
     Dosage: 0.16 MG PRIMING DOSE; C1, D1, TOTAL
     Route: 058
     Dates: start: 20240117, end: 20240117
  3. EPCORITAMAB [Suspect]
     Active Substance: EPCORITAMAB
     Dosage: 0.8 MG INTERMEDIATE DOSE; C1, D8, TOTAL
     Route: 058
     Dates: start: 20240124, end: 20240124
  4. EPCORITAMAB [Suspect]
     Active Substance: EPCORITAMAB
     Dosage: 48 MG, FULL DOSE, EVERY 1 WEEK, ONGOING
     Route: 058
     Dates: start: 20240131
  5. VINCRISTINE [Suspect]
     Active Substance: VINCRISTINE
     Indication: Diffuse large B-cell lymphoma
     Dosage: 2 MG, EVERY 3 WEEKS, ONGOING
     Route: 042
     Dates: start: 20240110
  6. RITUXIMAB [Suspect]
     Active Substance: RITUXIMAB
     Indication: Diffuse large B-cell lymphoma
     Dosage: 662 MG, EVERY 3 WEEKS, ONGOING
     Route: 042
     Dates: start: 20240109
  7. DOXORUBICIN [Suspect]
     Active Substance: DOXORUBICIN
     Indication: Diffuse large B-cell lymphoma
     Dosage: 88.2 MG, EVERY 3 WEEKS, ONGOING
     Route: 042
     Dates: start: 20240110
  8. PREDNISONE [Suspect]
     Active Substance: PREDNISONE
     Indication: Diffuse large B-cell lymphoma
     Dosage: 100 MG, C1-6, D1-5, EVERY ONE DAYS, ONGOING
     Route: 048
     Dates: start: 20240110
  9. Lercapress [Concomitant]
     Indication: Hypertension
     Dosage: 10 MG, 4/ DAYS
     Route: 065
     Dates: start: 20200621
  10. NEXIUM [Concomitant]
     Active Substance: ESOMEPRAZOLE MAGNESIUM
     Indication: Antacid therapy
     Dosage: 40 MG, 4/DAYS
     Route: 065
     Dates: start: 20200109
  11. LYRICA [Concomitant]
     Active Substance: PREGABALIN
     Indication: Neuropathy peripheral
     Dosage: 30 MG, EVERY 4 DAYS
     Route: 065
     Dates: start: 20190317
  12. NOVORAPID [Concomitant]
     Active Substance: INSULIN ASPART
     Indication: Type 2 diabetes mellitus
     Dosage: 10 ML, EVERY 8 HOURS
     Route: 065
     Dates: start: 20201216
  13. EPLERENONE [Concomitant]
     Active Substance: EPLERENONE
     Indication: Hypertension
     Dosage: 25 MG, 4/DAYS
     Route: 065
     Dates: start: 20230119
  14. PROPRANOLOL [Concomitant]
     Active Substance: PROPRANOLOL HYDROCHLORIDE
     Indication: Hypertension
     Dosage: 25 MG, 4/DAYS
     Route: 065
     Dates: start: 20230119
  15. CREON [Concomitant]
     Active Substance: PANCRELIPASE AMYLASE\PANCRELIPASE LIPASE\PANCRELIPASE PROTEASE
     Indication: Pancreaticoduodenectomy
     Dosage: 3 MG, EVERY 8 HOURS
     Route: 065
     Dates: start: 20200707
  16. ACYCLO V [Concomitant]
     Indication: Antiviral prophylaxis
     Dosage: 40 MG, 4/DAYS
     Route: 065
     Dates: start: 20240109
  17. ROSUVASTATIN [Concomitant]
     Active Substance: ROSUVASTATIN
     Indication: Hyperlipidaemia
     Dosage: 20 MG, 4/DAYS
     Route: 065
     Dates: start: 20210714
  18. Fusid [Concomitant]
     Indication: Infusion related reaction
     Dosage: 40 MG, TOTAL
     Route: 065
     Dates: start: 20240109, end: 20240109
  19. HYDROCORTISONE [Concomitant]
     Active Substance: HYDROCORTISONE
     Indication: Infusion related reaction
     Dosage: 100 MG, TOTAL
     Route: 065
     Dates: start: 20240109, end: 20240109
  20. MEPERIDINE [Concomitant]
     Active Substance: MEPERIDINE
     Indication: Pain prophylaxis
     Dosage: 6.25 MG, TOTAL
     Route: 065
     Dates: start: 20240109, end: 20240109
  21. PHENERGAN [Concomitant]
     Active Substance: PROMETHAZINE HYDROCHLORIDE
     Indication: Antiallergic therapy
     Dosage: 6.25 MG, TOTAL
     Route: 065
     Dates: start: 20240109, end: 20240109
  22. VALSARTAN [Concomitant]
     Active Substance: VALSARTAN
     Indication: Hypertension
     Dosage: 100 MG, 4/DAYS
     Route: 065
     Dates: start: 20230119

REACTIONS (1)
  - Cytokine release syndrome [Recovered/Resolved]

NARRATIVE: CASE EVENT DATE: 20240201
